FAERS Safety Report 16011585 (Version 1)
Quarter: 2019Q1

REPORT INFORMATION
  Report Type: Spontaneous
  Country: US (occurrence: US)
  Receive Date: 20190227
  Receipt Date: 20190227
  Transmission Date: 20190418
  Serious: No
  Sender: FDA-Public Use
  Company Number: US-PFIZER INC-2019078922

PATIENT
  Age: 50 Year
  Sex: Male
  Weight: 108.86 kg

DRUGS (13)
  1. LYRICA [Suspect]
     Active Substance: PREGABALIN
     Indication: TINNITUS
  2. AMITRIPTYLINE [Concomitant]
     Active Substance: AMITRIPTYLINE
     Indication: INSOMNIA
     Dosage: 25 MG, ONCE AT NIGHT
  3. LYRICA [Suspect]
     Active Substance: PREGABALIN
     Indication: HEADACHE
  4. LEVOTHYROXINE. [Concomitant]
     Active Substance: LEVOTHYROXINE
     Indication: THYROIDECTOMY
     Dosage: 150 UG, 1X/DAY
  5. LYRICA [Suspect]
     Active Substance: PREGABALIN
     Indication: NAUSEA
  6. LYRICA [Suspect]
     Active Substance: PREGABALIN
     Indication: FIBROMYALGIA
     Dosage: 300 MG, 2X/DAY
     Route: 048
  7. LYRICA [Suspect]
     Active Substance: PREGABALIN
     Indication: MIGRAINE
     Dosage: 300 MG, TOOK 1 PILL DAILY
     Dates: start: 20190216, end: 20190217
  8. BACLOFEN. [Concomitant]
     Active Substance: BACLOFEN
     Indication: MYALGIA
     Dosage: UNK
  9. LYRICA [Suspect]
     Active Substance: PREGABALIN
     Indication: DIZZINESS
  10. BACLOFEN. [Concomitant]
     Active Substance: BACLOFEN
     Indication: MUSCLE SPASMS
  11. BACLOFEN. [Concomitant]
     Active Substance: BACLOFEN
     Indication: MUSCLE TIGHTNESS
  12. BACLOFEN. [Concomitant]
     Active Substance: BACLOFEN
     Indication: MYOSITIS
  13. DULOXETINE. [Concomitant]
     Active Substance: DULOXETINE
     Indication: NERVOUS SYSTEM DISORDER
     Dosage: 60 MG, 1X/DAY

REACTIONS (7)
  - Intentional product misuse [Unknown]
  - Product dose omission [Unknown]
  - Temporomandibular joint syndrome [Unknown]
  - Muscle disorder [Unknown]
  - Palpitations [Unknown]
  - Cardiac disorder [Unknown]
  - Insomnia [Unknown]

NARRATIVE: CASE EVENT DATE: 20190216
